FAERS Safety Report 20900854 (Version 1)
Quarter: 2022Q2

REPORT INFORMATION
  Report Type: Spontaneous
  Country: US (occurrence: None)
  Receive Date: 20220531
  Receipt Date: 20220531
  Transmission Date: 20220721
  Serious: Yes (Other)
  Sender: FDA-Public Use
  Company Number: None

PATIENT
  Age: 45 Year
  Sex: Female
  Weight: 71.21 kg

DRUGS (3)
  1. NIRMATRELVIR\RITONAVIR [Suspect]
     Active Substance: NIRMATRELVIR\RITONAVIR
     Indication: COVID-19
     Route: 048
     Dates: start: 20220512, end: 20220517
  2. NIRMATRELVIR\RITONAVIR [Suspect]
     Active Substance: NIRMATRELVIR\RITONAVIR
     Indication: Asthma
  3. PAXLOVID [Concomitant]
     Active Substance: NIRMATRELVIR\RITONAVIR
     Dates: start: 20220512, end: 20220517

REACTIONS (8)
  - Pyrexia [None]
  - Chills [None]
  - Cough [None]
  - Diarrhoea [None]
  - SARS-CoV-2 test negative [None]
  - Influenza A virus test positive [None]
  - Weight decreased [None]
  - Infection susceptibility increased [None]

NARRATIVE: CASE EVENT DATE: 20220525
